FAERS Safety Report 12067805 (Version 1)
Quarter: 2016Q1

REPORT INFORMATION
  Report Type: Spontaneous
  Country: US (occurrence: US)
  Receive Date: 20160211
  Receipt Date: 20160211
  Transmission Date: 20160526
  Serious: No
  Sender: FDA-Public Use
  Company Number: US-SMITH AND NEPHEW, INC-2015SMT00071

PATIENT
  Age: 92 Year
  Sex: Female
  Weight: 61.22 kg

DRUGS (6)
  1. REGRANEX [Suspect]
     Active Substance: BECAPLERMIN
     Indication: WOUND
     Dosage: UNK
     Route: 061
     Dates: start: 20150423, end: 20150425
  2. GABAPENTIN. [Concomitant]
     Active Substance: GABAPENTIN
  3. AMLODIPINE [Concomitant]
     Active Substance: AMLODIPINE BESYLATE
  4. CENTRUM [Concomitant]
     Active Substance: VITAMINS
  5. UNSPECIFIED THYROID PILL [Concomitant]
  6. LISINOPRIL. [Concomitant]
     Active Substance: LISINOPRIL

REACTIONS (7)
  - Application site pain [Recovering/Resolving]
  - Gait disturbance [Recovered/Resolved]
  - Drug hypersensitivity [Recovering/Resolving]
  - Incorrect drug administration duration [Recovered/Resolved]
  - Application site warmth [Recovered/Resolved]
  - Application site erythema [Recovering/Resolving]
  - Off label use [Recovered/Resolved]

NARRATIVE: CASE EVENT DATE: 20150423
